FAERS Safety Report 18288911 (Version 1)
Quarter: 2020Q3

REPORT INFORMATION
  Report Type: Spontaneous
  Country: US (occurrence: US)
  Receive Date: 20200921
  Receipt Date: 20200921
  Transmission Date: 20201103
  Serious: No
  Sender: FDA-Public Use
  Company Number: US-PFIZER INC-2020147381

PATIENT
  Age: 92 Year

DRUGS (1)
  1. CELEBREX [Suspect]
     Active Substance: CELECOXIB
     Dosage: 200 MG, 4X/DAY
     Route: 048

REACTIONS (2)
  - Prescribed overdose [Unknown]
  - Confusional state [Unknown]
